FAERS Safety Report 8169030-0 (Version None)
Quarter: 2012Q1

REPORT INFORMATION
  Report Type: 
  Country: None (occurrence: None)
  Receive Date: 20120227
  Receipt Date: 20120221
  Transmission Date: 20120608
  Serious: No
  Sender: FDA-Public Use
  Company Number: US-PFIZER INC-2012046110

PATIENT
  Sex: Female

DRUGS (4)
  1. CELEBREX [Suspect]
     Dosage: UNK
  2. METOPROLOL [Concomitant]
     Indication: HYPERTENSION
     Dosage: 50 MG, UNK
  3. VERAPAMIL [Concomitant]
     Indication: HYPERTENSION
     Dosage: 80 MG, UNK
  4. CELEBREX [Suspect]
     Dosage: 200 MG, UNK

REACTIONS (1)
  - PAIN [None]
